FAERS Safety Report 21736654 (Version 1)
Quarter: 2022Q4

REPORT INFORMATION
  Report Type: Spontaneous
  Country: US (occurrence: US)
  Receive Date: 20221216
  Receipt Date: 20221216
  Transmission Date: 20230112
  Serious: Yes (Disabling, Other)
  Sender: FDA-Public Use
  Company Number: US-SA-SAC20221214000166

PATIENT
  Sex: Female

DRUGS (7)
  1. AMBIEN [Suspect]
     Active Substance: ZOLPIDEM TARTRATE
     Dosage: UNK
  2. BUPROPION HYDROCHLORIDE [Suspect]
     Active Substance: BUPROPION HYDROCHLORIDE
     Dosage: 150MG QD
  3. DIVALPROEX SODIUM [Suspect]
     Active Substance: DIVALPROEX SODIUM
  4. OXCARBAZEPINE [Suspect]
     Active Substance: OXCARBAZEPINE
  5. TIAGABINE HYDROCHLORIDE [Suspect]
     Active Substance: TIAGABINE HYDROCHLORIDE
     Dosage: UNK
  6. BUPROPION HYDROCHLORIDE [Suspect]
     Active Substance: BUPROPION HYDROCHLORIDE
     Dosage: 1 TABLET PER DAY
  7. BUPROPION HYDROCHLORIDE [Suspect]
     Active Substance: BUPROPION HYDROCHLORIDE
     Dosage: 3 TABLETS PER DAY

REACTIONS (6)
  - Intestinal strangulation [Unknown]
  - Bipolar disorder [Unknown]
  - Feeling abnormal [Unknown]
  - Constipation [Unknown]
  - Irritable bowel syndrome [Unknown]
  - Gastric bypass [Unknown]
